FAERS Safety Report 24891549 (Version 1)
Quarter: 2025Q1

REPORT INFORMATION
  Report Type: Spontaneous
  Country: US (occurrence: US)
  Receive Date: 20250127
  Receipt Date: 20250127
  Transmission Date: 20250409
  Serious: No
  Sender: INCYTE
  Company Number: US-INCYTE CORPORATION-2025IN000408

PATIENT

DRUGS (1)
  1. JAKAFI [Suspect]
     Active Substance: RUXOLITINIB
     Indication: Polycythaemia vera
     Dosage: 5 MILLIGRAM, BID
     Route: 048
     Dates: start: 20241231

REACTIONS (7)
  - Leukocytosis [Unknown]
  - Splenomegaly [Unknown]
  - Gastrooesophageal reflux disease [Unknown]
  - Polycythaemia [Unknown]
  - Heart rate decreased [Unknown]
  - Aquagenic pruritus [Unknown]
  - Calculus bladder [Unknown]
